FAERS Safety Report 6290599-5 (Version None)
Quarter: 2009Q3

REPORT INFORMATION
  Report Type: 
  Country: None (occurrence: None)
  Receive Date: 20090728
  Receipt Date: 20090728
  Transmission Date: 20100115
  Serious: No
  Sender: FDA-Public Use
  Company Number: None

PATIENT
  Age: 50 Year
  Sex: Female
  Weight: 68.0396 kg

DRUGS (2)
  1. CLINDAMYCIN HCL [Suspect]
     Indication: TOOTH INFECTION
     Dosage: ONE CAPSULE 4 TIMES PER DAY PO
     Route: 048
     Dates: start: 20090506, end: 20090516
  2. CLINDAMYCIN HCL [Suspect]
     Indication: TOOTH INFECTION
     Dosage: ONE CAPSULE 4 TIMES PER DAY PO
     Route: 048
     Dates: start: 20090625, end: 20090705

REACTIONS (1)
  - ANAL PRURITUS [None]
